FAERS Safety Report 9278331 (Version 1)
Quarter: 2013Q2

REPORT INFORMATION
  Report Type: Spontaneous
  Country: NO (occurrence: NO)
  Receive Date: 20130508
  Receipt Date: 20130508
  Transmission Date: 20140414
  Serious: Yes (Other)
  Sender: FDA-Public Use
  Company Number: NO-PFIZER INC-2013139459

PATIENT
  Age: 57 Year
  Sex: Female

DRUGS (4)
  1. LYRICA [Suspect]
     Indication: ANXIETY
     Dosage: 750 MG, 1X/DAY
     Route: 048
     Dates: start: 2009
  2. NOZINAN [Concomitant]
     Indication: SLEEP DISORDER
     Route: 048
  3. LAMICTAL [Concomitant]
     Indication: DEPRESSION
     Route: 048
  4. ATARAX [Concomitant]
     Indication: SLEEP DISORDER
     Route: 048

REACTIONS (4)
  - Drug tolerance [Recovering/Resolving]
  - Drug dependence [Recovering/Resolving]
  - Abnormal behaviour [Recovering/Resolving]
  - Drug withdrawal syndrome [Recovering/Resolving]
